FAERS Safety Report 8340044-0 (Version None)
Quarter: 2012Q2

REPORT INFORMATION
  Report Type: 
  Country: None (occurrence: None)
  Receive Date: 20120507
  Receipt Date: 20120425
  Transmission Date: 20120825
  Serious: Yes (Hospitalization)
  Sender: FDA-Public Use
  Company Number: DE-BAYER-2012-017379

PATIENT
  Age: 56 Year
  Sex: Male
  Weight: 90 kg

DRUGS (12)
  1. SORAFENIB (RAF KINASE INHIBITOR) [Suspect]
     Indication: HEPATIC NEOPLASM MALIGNANT
     Dosage: UNK
     Dates: start: 20100304, end: 20100922
  2. SORAFENIB (RAF KINASE INHIBITOR) [Suspect]
     Dosage: 400 MG/DAY
     Dates: start: 20120125, end: 20120131
  3. LEVEMIR [Concomitant]
     Indication: TYPE 2 DIABETES MELLITUS
     Dosage: DAILY DOSE 16 IU
     Route: 058
     Dates: start: 20110101
  4. URSO FALK [Concomitant]
     Indication: PROPHYLAXIS
     Dosage: DAILY DOSE 850 MG
     Route: 048
     Dates: start: 20120120
  5. HEPAMERZ [ORNITHINE ASPARTATE] [Concomitant]
     Indication: CIRRHOSIS ALCOHOLIC
     Dosage: UNK
     Route: 048
  6. BLINDED SORAFENIB (RAF KINASE INHIBITOR) [Suspect]
     Indication: HEPATIC NEOPLASM MALIGNANT
  7. PREDNISOLONE [Concomitant]
     Indication: PROPHYLAXIS
     Dosage: DAILY DOSE 5 MG
     Route: 048
     Dates: start: 20120120
  8. BIFITERAL [Concomitant]
     Indication: CONSTIPATION
     Dosage: DAILY DOSE 60 MG
     Route: 048
     Dates: start: 20120202
  9. ACTRAPID [Concomitant]
     Indication: TYPE 2 DIABETES MELLITUS
     Dosage: DAILY DOSE 42 IU
     Route: 058
     Dates: start: 20110101
  10. SORAFENIB (RAF KINASE INHIBITOR) [Suspect]
     Dosage: 800 MG/DAY
     Dates: start: 20120201, end: 20120223
  11. PROPRANOLOL [Concomitant]
     Indication: HYPERTENSION
     Dosage: DAILY DOSE 80 MG
     Route: 048
  12. PANTOPRAZOLE [Concomitant]
     Indication: PROPHYLAXIS
     Dosage: DAILY DOSE 40 MG
     Route: 048
     Dates: start: 20111123

REACTIONS (1)
  - HEPATIC ENCEPHALOPATHY [None]
